FAERS Safety Report 20616350 (Version 1)
Quarter: 2022Q1

REPORT INFORMATION
  Report Type: Spontaneous
  Country: US (occurrence: None)
  Receive Date: 20220321
  Receipt Date: 20220321
  Transmission Date: 20220423
  Serious: Yes (Hospitalization)
  Sender: FDA-Public Use
  Company Number: None

PATIENT
  Age: 51 Year
  Sex: Male
  Weight: 102 kg

DRUGS (1)
  1. INSULIN ASPART [Suspect]
     Active Substance: INSULIN ASPART
     Indication: Diabetes mellitus
     Dosage: 70 UNITS TID SQ?
     Route: 058
     Dates: start: 20210204

REACTIONS (2)
  - Suicide attempt [None]
  - Intentional overdose [None]

NARRATIVE: CASE EVENT DATE: 20220314
